FAERS Safety Report 20791109 (Version 1)
Quarter: 2022Q2

REPORT INFORMATION
  Report Type: Spontaneous
  Country: US (occurrence: US)
  Receive Date: 20220505
  Receipt Date: 20220505
  Transmission Date: 20220721
  Serious: Yes (Hospitalization)
  Sender: FDA-Public Use
  Company Number: US-CELGENE-USA-20220205314

PATIENT
  Age: 72 Year
  Sex: Male

DRUGS (2)
  1. REVLIMID [Suspect]
     Active Substance: LENALIDOMIDE
     Indication: Plasma cell myeloma
     Dosage: 25 MILLIGRAM
     Route: 048
     Dates: start: 201906
  2. REVLIMID [Suspect]
     Active Substance: LENALIDOMIDE
     Dosage: TAKE 1 WHOLE  CAPSULE BY MOUTH WITH WATER AT THE SAME TIME EVERY DAY ON DAYS 1-14 OF EACH 21 DAY CYC
     Route: 048
     Dates: start: 20211008

REACTIONS (2)
  - Nail discolouration [Unknown]
  - Hospitalisation [Unknown]
